FAERS Safety Report 9019660 (Version 1)
Quarter: 2013Q1

REPORT INFORMATION
  Report Type: Spontaneous
  Country: BR (occurrence: BR)
  Receive Date: 20130118
  Receipt Date: 20130118
  Transmission Date: 20140127
  Serious: Yes (Hospitalization)
  Sender: FDA-Public Use
  Company Number: BR-PFIZER INC-2013021667

PATIENT
  Age: 81 Year
  Sex: Female

DRUGS (2)
  1. CITALOR [Suspect]
     Indication: DIABETES MELLITUS
     Dosage: UNK
     Route: 048
     Dates: start: 20111018
  2. CITALOR [Suspect]
     Indication: HYPERTENSION

REACTIONS (1)
  - Weight decreased [Unknown]
